APPROVED DRUG PRODUCT: FOLEX
Active Ingredient: METHOTREXATE SODIUM
Strength: EQ 250MG BASE/VIAL
Dosage Form/Route: INJECTABLE;INJECTION
Application: A088954 | Product #001
Applicant: PHARMACIA AND UPJOHN CO
Approved: Oct 24, 1985 | RLD: No | RS: No | Type: DISCN